FAERS Safety Report 20415978 (Version 3)
Quarter: 2022Q2

REPORT INFORMATION
  Report Type: Spontaneous
  Country: IT (occurrence: IT)
  Receive Date: 20220202
  Receipt Date: 20220413
  Transmission Date: 20220721
  Serious: Yes (Life-Threatening, Hospitalization)
  Sender: FDA-Public Use
  Company Number: IT-JNJFOC-20220144894

PATIENT
  Age: 76 Year
  Sex: Male
  Weight: 79 kg

DRUGS (13)
  1. FENTANYL [Suspect]
     Active Substance: FENTANYL
     Indication: Sciatica
     Route: 062
     Dates: start: 20211026, end: 20211215
  2. ACASUNLIMAB [Suspect]
     Active Substance: ACASUNLIMAB
     Indication: Non-small cell lung cancer
     Dosage: ON DAY 1 OF EVERY 3-WEEK CYCLE (1Q3W).
     Route: 042
     Dates: start: 20211029, end: 20211119
  3. ASPIRIN [Concomitant]
     Active Substance: ASPIRIN
     Dates: start: 20191121
  4. FOLIC ACID [Concomitant]
     Active Substance: FOLIC ACID
     Dates: start: 20191125
  5. LASTAN [Concomitant]
     Dates: start: 2016
  6. PREDNISONE [Concomitant]
     Active Substance: PREDNISONE
     Dates: start: 20211202
  7. FAMOTIDINE [Concomitant]
     Active Substance: FAMOTIDINE
     Dates: start: 20200828
  8. LYRICA [Concomitant]
     Active Substance: PREGABALIN
     Dates: start: 20211002
  9. ACETAMINOPHEN [Concomitant]
     Active Substance: ACETAMINOPHEN
     Dates: start: 20210427
  10. BISOPROLOL FUMARATE [Concomitant]
     Active Substance: BISOPROLOL FUMARATE
     Dates: start: 20211026
  11. CHOLECALCIFEROL [Concomitant]
     Active Substance: CHOLECALCIFEROL
     Dates: start: 20211012
  12. MORPHINE SULFATE [Concomitant]
     Active Substance: MORPHINE SULFATE
     Dates: start: 20211216
  13. TALOFEN [Concomitant]
     Active Substance: PROMAZINE HYDROCHLORIDE
     Route: 065
     Dates: start: 20211221, end: 20211221

REACTIONS (2)
  - Pneumothorax [Recovered/Resolved]
  - Toxicity to various agents [Not Recovered/Not Resolved]

NARRATIVE: CASE EVENT DATE: 20211202
